FAERS Safety Report 9112534 (Version 3)
Quarter: 2013Q3

REPORT INFORMATION
  Report Type: Spontaneous
  Country: US (occurrence: US)
  Receive Date: 20130211
  Receipt Date: 20130725
  Transmission Date: 20140515
  Serious: Yes (Other)
  Sender: FDA-Public Use
  Company Number: US-UCBSA-077835

PATIENT
  Age: 59 Year
  Sex: Male
  Weight: 113.3 kg

DRUGS (2)
  1. CIMZIA [Suspect]
     Indication: CROHN^S DISEASE
     Dates: start: 20081126, end: 20130711
  2. 6 MP [Concomitant]
     Indication: CROHN^S DISEASE
     Dosage: DOSE : 1 1/2
     Route: 048
     Dates: end: 201301

REACTIONS (3)
  - Squamous cell carcinoma [Not Recovered/Not Resolved]
  - Aspiration [Not Recovered/Not Resolved]
  - Drug ineffective [Recovered/Resolved]
